FAERS Safety Report 4817977-2 (Version None)
Quarter: 2005Q4

REPORT INFORMATION
  Report Type: 
  Country: None (occurrence: None)
  Receive Date: 20051102
  Receipt Date: 20051024
  Transmission Date: 20060501
  Serious: Yes (Other)
  Sender: FDA-Public Use
  Company Number: US-JNJFOC-20050901099

PATIENT
  Sex: Male
  Weight: 82.56 kg

DRUGS (10)
  1. REMICADE [Suspect]
     Dosage: 5 VIALS
     Route: 042
  2. REMICADE [Suspect]
     Route: 042
  3. REMICADE [Suspect]
     Route: 042
  4. REMICADE [Suspect]
     Route: 042
  5. REMICADE [Suspect]
     Route: 042
  6. REMICADE [Suspect]
     Indication: RHEUMATOID ARTHRITIS
     Route: 042
  7. NSAIDS [Concomitant]
     Dosage: GREATER THAN 6 MONTHS
  8. CARDIAC MEDICATION [Concomitant]
  9. CELEBREX [Concomitant]
     Indication: RHEUMATOID ARTHRITIS
  10. ANALGESICS [Concomitant]
     Dosage: GREATER THAN 6 MONTHS

REACTIONS (2)
  - PROSTATE CANCER [None]
  - RHEUMATOID ARTHRITIS [None]
